FAERS Safety Report 6037531-7 (Version None)
Quarter: 2009Q1

REPORT INFORMATION
  Report Type: 
  Country: None (occurrence: None)
  Receive Date: 20090114
  Receipt Date: 20090106
  Transmission Date: 20090719
  Serious: Yes (Hospitalization)
  Sender: FDA-Public Use
  Company Number: US-ELI_LILLY_AND_COMPANY-US200901000526

PATIENT
  Sex: Male
  Weight: 90.703 kg

DRUGS (12)
  1. BYETTA [Suspect]
     Indication: TYPE 2 DIABETES MELLITUS
     Dosage: 5 UG, 2/D
     Route: 058
     Dates: start: 20050101, end: 20050101
  2. BYETTA [Suspect]
     Dosage: 10 UG, 2/D
     Route: 058
     Dates: start: 20050101, end: 20081001
  3. GLIPIZIDE [Concomitant]
     Indication: TYPE 2 DIABETES MELLITUS
     Dosage: 5 MG, 2/D
     Route: 048
  4. GLUCOPHAGE [Concomitant]
     Indication: TYPE 2 DIABETES MELLITUS
     Dosage: 1000 MG, UNK
     Route: 048
  5. ACTOS [Concomitant]
     Indication: TYPE 2 DIABETES MELLITUS
  6. TRICOR [Concomitant]
     Indication: BLOOD TRIGLYCERIDES
     Dosage: 40 MG, DAILY (1/D)
     Route: 048
  7. LIPITOR [Concomitant]
     Dosage: 40 MG, DAILY (1/D)
     Route: 048
  8. CATAPRES                                /UNK/ [Concomitant]
     Indication: BLOOD PRESSURE INCREASED
     Dosage: 0.1 MG, DAILY (1/D)
     Route: 048
     Dates: start: 19830101
  9. VASOTEC [Concomitant]
     Indication: BLOOD PRESSURE INCREASED
     Dosage: 10 MG, 2/D
     Route: 048
  10. HYDROCHLOROTHIAZIDE [Concomitant]
     Indication: BLOOD PRESSURE INCREASED
     Dosage: 25 MG, DAILY (1/D)
     Route: 048
  11. ALLOPURINOL [Concomitant]
     Indication: NEPHROLITHIASIS
     Dosage: 300 MG, DAILY (1/D)
     Route: 048
  12. SYMLIN [Concomitant]
     Dates: start: 20081001

REACTIONS (2)
  - ABDOMINAL PAIN UPPER [None]
  - PANCREATITIS [None]
